FAERS Safety Report 24973503 (Version 1)
Quarter: 2025Q1

REPORT INFORMATION
  Report Type: Spontaneous
  Country: ES (occurrence: ES)
  Receive Date: 20250216
  Receipt Date: 20250216
  Transmission Date: 20250408
  Serious: Yes (Life-Threatening, Hospitalization, Other)
  Sender: NOVO NORDISK
  Company Number: ES-NOVOPROD-1367328

PATIENT
  Age: 28 Year
  Sex: Female

DRUGS (1)
  1. NOVOSEVEN [Suspect]
     Active Substance: COAGULATION FACTOR VIIA RECOMBINANT HUMAN
     Indication: Postpartum haemorrhage

REACTIONS (3)
  - Postpartum haemorrhage [Unknown]
  - Condition aggravated [Unknown]
  - Shock haemorrhagic [Unknown]
